FAERS Safety Report 10230951 (Version 1)
Quarter: 2014Q2

REPORT INFORMATION
  Report Type: Spontaneous
  Country: DE (occurrence: DE)
  Receive Date: 20140611
  Receipt Date: 20140611
  Transmission Date: 20141212
  Serious: Yes (Hospitalization)
  Sender: FDA-Public Use
  Company Number: DE-TEVA-486843GER

PATIENT
  Age: 67 Year
  Sex: Female

DRUGS (3)
  1. RAMIPRIL [Suspect]
     Dosage: 10 MILLIGRAM DAILY;
     Route: 048
     Dates: end: 20140129
  2. TIMONIL [Interacting]
     Route: 048
     Dates: start: 20140129, end: 20140201
  3. DISTRANEURIN [Concomitant]
     Dates: start: 20140129

REACTIONS (2)
  - Hyponatraemia [Recovered/Resolved]
  - Drug interaction [Recovered/Resolved]
